FAERS Safety Report 11307446 (Version 2)
Quarter: 2015Q3

REPORT INFORMATION
  Report Type: Report from Study
  Country: GB (occurrence: GB)
  Receive Date: 20150723
  Receipt Date: 20150731
  Transmission Date: 20151125
  Serious: Yes (Death)
  Sender: FDA-Public Use
  Company Number: PHFR2015GB005503

PATIENT
  Age: 19 Year
  Sex: Female
  Weight: 71 kg

DRUGS (22)
  1. CYTARABINE. [Suspect]
     Active Substance: CYTARABINE
     Dosage: 170 MG, BID, FOR 20 MINS DURATION
     Dates: end: 20150516
  2. ALLOPURINOL. [Concomitant]
     Active Substance: ALLOPURINOL
     Indication: PRODUCT USED FOR UNKNOWN INDICATION
     Dosage: UNK UNK, QD (ONCE IN MORNING) (DOSE AS PER RENAL FUNCTION)
     Route: 065
  3. GENERIC CICLOSPORIN [Suspect]
     Active Substance: CYCLOSPORINE
     Indication: STEM CELL TRANSPLANT
  4. IDARUBICIN [Suspect]
     Active Substance: IDARUBICIN
     Indication: ACUTE MYELOID LEUKAEMIA
     Dosage: 14 MG, QD
     Route: 040
     Dates: start: 20140619, end: 20140622
  5. CYTARABINE. [Suspect]
     Active Substance: CYTARABINE
     Dosage: 3560 MG, QD, PER DAY FOR 4 HOURS DURATION
     Route: 042
     Dates: start: 20140729, end: 20140801
  6. DOMPERIDONE [Concomitant]
     Active Substance: DOMPERIDONE
     Indication: PRODUCT USED FOR UNKNOWN INDICATION
     Dosage: 20 MG, QID (AS NEEDED)
     Route: 065
  7. FLUDARABINE [Suspect]
     Active Substance: FLUDARABINE PHOSPHATE
     Indication: ACUTE MYELOID LEUKAEMIA
     Dosage: 50 MG, QD FOR 30 MINS DURATION
     Route: 042
     Dates: start: 20140617, end: 20140621
  8. FLUDARABINE [Suspect]
     Active Substance: FLUDARABINE PHOSPHATE
     Dosage: 50 MG, QD FOR 30 MINS DURATION
     Route: 042
     Dates: start: 20140729, end: 20140802
  9. MYLOTARG [Suspect]
     Active Substance: GEMTUZUMAB OZOGAMICIN
     Indication: ACUTE MYELOID LEUKAEMIA
     Dosage: 5 MG, QD (PER DAY SINGLE DOSE) FOR 2 HOURS DURATION
     Route: 042
     Dates: start: 20140619, end: 20140619
  10. CYTARABINE. [Suspect]
     Active Substance: CYTARABINE
     Indication: ACUTE MYELOID LEUKAEMIA
     Dosage: 170 MG, BID, FOR 20 MINS DURATION
     Route: 042
     Dates: start: 20140507
  11. PREDNISOLONE. [Suspect]
     Active Substance: PREDNISOLONE
     Indication: GRAFT VERSUS HOST DISEASE
     Route: 065
  12. G-CSF [Suspect]
     Active Substance: GRANULOCYTE COLONY-STIMULATING FACTOR NOS
     Indication: ACUTE MYELOID LEUKAEMIA
     Dosage: UNK
     Route: 042
     Dates: start: 20140507, end: 20140802
  13. ONDASETRON [Concomitant]
     Active Substance: ONDANSETRON
     Indication: PRODUCT USED FOR UNKNOWN INDICATION
     Dosage: 8 MG, BID, FOR 8 DAYS
     Route: 048
  14. COTRIMOXAZOLE [Concomitant]
     Active Substance: SULFAMETHOXAZOLE\TRIMETHOPRIM
     Indication: PRODUCT USED FOR UNKNOWN INDICATION
     Dosage: 960 MG, CYCLIC(MONDAY, WEDNESDAY, FRIDAY)
     Route: 065
  15. ITRACONAZOLE. [Concomitant]
     Active Substance: ITRACONAZOLE
     Indication: PRODUCT USED FOR UNKNOWN INDICATION
     Dosage: 200 MG, BID
     Route: 065
  16. PREDNISOLONE. [Suspect]
     Active Substance: PREDNISOLONE
     Indication: STEM CELL TRANSPLANT
  17. CYTARABINE. [Suspect]
     Active Substance: CYTARABINE
     Dosage: 3500 MG, QD, PER DAY FOR 4 HOURS DURATION
     Route: 042
     Dates: start: 20140617, end: 20140621
  18. GENERIC CICLOSPORIN [Suspect]
     Active Substance: CYCLOSPORINE
     Indication: GRAFT VERSUS HOST DISEASE
     Route: 065
  19. DAUNORUBICIN [Suspect]
     Active Substance: DAUNORUBICIN
     Indication: ACUTE MYELOID LEUKAEMIA
     Dosage: 150 MG, QD, FOR 1 HOUR DUARTION ON ALTERNATE DAYS
     Route: 042
     Dates: start: 20140507, end: 20140511
  20. ACICLOVIR [Concomitant]
     Active Substance: ACYCLOVIR
     Indication: PRODUCT USED FOR UNKNOWN INDICATION
     Dosage: 400 MG, BID
     Route: 048
  21. IDARUBICIN [Suspect]
     Active Substance: IDARUBICIN
     Dosage: 14 MG, QD
     Route: 040
     Dates: start: 20140731, end: 20140802
  22. CHLORHEXIDINE [Concomitant]
     Active Substance: CHLORHEXIDINE
     Indication: PRODUCT USED FOR UNKNOWN INDICATION
     Dosage: 10 ML, QID
     Route: 065

REACTIONS (1)
  - Staphylococcal sepsis [Fatal]
